FAERS Safety Report 6345421-5 (Version None)
Quarter: 2009Q3

REPORT INFORMATION
  Report Type: 
  Country: None (occurrence: None)
  Receive Date: 20090909
  Receipt Date: 20090831
  Transmission Date: 20100115
  Serious: Yes (Other)
  Sender: FDA-Public Use
  Company Number: US-BAYER-200913638BCC

PATIENT
  Age: 65 Year
  Sex: Male
  Weight: 102 kg

DRUGS (6)
  1. BAYER QUICK RELEASE CRYSTALS [Suspect]
     Indication: ANALGESIA
     Route: 048
     Dates: start: 20090828, end: 20090828
  2. GABAPENTIN [Concomitant]
  3. DILTIAZEM [Concomitant]
  4. LISINOPRIL [Concomitant]
  5. ASPIRIN [Concomitant]
  6. IBUPROFEN [Concomitant]

REACTIONS (4)
  - APHAGIA [None]
  - CHOKING SENSATION [None]
  - DIZZINESS [None]
  - DYSPNOEA [None]
